FAERS Safety Report 9197902 (Version 1)
Quarter: 2013Q1

REPORT INFORMATION
  Report Type: Spontaneous
  Country: US (occurrence: US)
  Receive Date: 20130328
  Receipt Date: 20130328
  Transmission Date: 20140127
  Serious: No
  Sender: FDA-Public Use
  Company Number: US-PFIZER INC-2013096378

PATIENT
  Age: 48 Year
  Sex: Female
  Weight: 45.35 kg

DRUGS (1)
  1. PREMARIN VAGINAL CREAM [Suspect]
     Indication: VAGINAL INFECTION
     Dosage: 1 G, 2X/WEEK
     Route: 067
     Dates: start: 20130120, end: 2013

REACTIONS (3)
  - Hot flush [Recovered/Resolved]
  - Insomnia [Recovered/Resolved]
  - Malaise [Recovered/Resolved]
